FAERS Safety Report 8309352-3 (Version None)
Quarter: 2012Q2

REPORT INFORMATION
  Report Type: 
  Country: None (occurrence: None)
  Receive Date: 20120425
  Receipt Date: 20120416
  Transmission Date: 20120825
  Serious: Yes (Other)
  Sender: FDA-Public Use
  Company Number: US-ASTRAZENECA-2009SE24251

PATIENT
  Age: 72 Year
  Sex: Male
  Weight: 115.7 kg

DRUGS (12)
  1. LISINOPRIL [Concomitant]
  2. LANSOPRAZOLE [Concomitant]
  3. VITAMIN B COMPLEX CAP [Concomitant]
  4. FISHOIL [Concomitant]
  5. NIASPAN [Suspect]
     Route: 065
  6. CARVEDILOL [Concomitant]
  7. COQ 10 [Concomitant]
  8. PANTOTHENIC ACID [Concomitant]
  9. CRESTOR [Suspect]
     Indication: BLOOD CHOLESTEROL ABNORMAL
     Route: 048
     Dates: start: 20080101
  10. NIASPAN [Suspect]
     Dosage: LOWER DOSES
     Route: 065
  11. MULTI-VITAMIN [Concomitant]
  12. CHROMIUM CHLORIDE [Concomitant]

REACTIONS (5)
  - ATRIAL FIBRILLATION [None]
  - PARAESTHESIA [None]
  - SENSATION OF FOREIGN BODY [None]
  - FLUSHING [None]
  - HIGH DENSITY LIPOPROTEIN DECREASED [None]
